FAERS Safety Report 7517600-2 (Version None)
Quarter: 2011Q2

REPORT INFORMATION
  Report Type: 
  Country: None (occurrence: None)
  Receive Date: 20110601
  Receipt Date: 20110519
  Transmission Date: 20111010
  Serious: Yes (Hospitalization)
  Sender: FDA-Public Use
  Company Number: US-ELI_LILLY_AND_COMPANY-US201103003139

PATIENT
  Age: 61 Year
  Sex: Female
  Weight: 53.061 kg

DRUGS (1)
  1. EVISTA [Suspect]
     Indication: OSTEOPOROSIS
     Dosage: 60 MG, QD
     Route: 048
     Dates: start: 20050203, end: 20110209

REACTIONS (3)
  - PERICARDIAL EFFUSION [None]
  - HEPATIC CYST [None]
  - SUBCLAVIAN VEIN THROMBOSIS [None]
